FAERS Safety Report 17435971 (Version 2)
Quarter: 2020Q1

REPORT INFORMATION
  Report Type: Not Available
  Country: US (occurrence: US)
  Receive Date: 20200219
  Receipt Date: 20200303
  Transmission Date: 20200409
  Serious: No
  Sender: FDA-Public Use
  Company Number: US-NEUROCRINE BIOSCIENCES INC.-2020NBI00435

PATIENT
  Age: 31 Year
  Sex: Female

DRUGS (5)
  1. INGREZZA [Suspect]
     Active Substance: VALBENAZINE
     Route: 048
     Dates: start: 20190723, end: 20200107
  2. LEXAPRO [Concomitant]
     Active Substance: ESCITALOPRAM OXALATE
     Indication: ANXIETY
     Route: 048
  3. INGREZZA [Suspect]
     Active Substance: VALBENAZINE
     Indication: TARDIVE DYSKINESIA
     Route: 048
     Dates: start: 20190715, end: 20190722
  4. LITHIUM. [Concomitant]
     Active Substance: LITHIUM
     Indication: BIPOLAR DISORDER
     Route: 048
  5. ZYPREXA [Concomitant]
     Active Substance: OLANZAPINE
     Indication: PSYCHOTIC DISORDER
     Dosage: EVERY NIGHT AT BEDTIME
     Route: 048

REACTIONS (2)
  - Dyspnoea [Recovered/Resolved]
  - Snoring [Recovered/Resolved]

NARRATIVE: CASE EVENT DATE: 20191101
